FAERS Safety Report 4607976-8 (Version None)
Quarter: 2005Q2

REPORT INFORMATION
  Report Type: 
  Country: None (occurrence: None)
  Receive Date: 20050228
  Receipt Date: 20041222
  Transmission Date: 20051028
  Serious: No
  Sender: FDA-Public Use
  Company Number: FABR-10935

PATIENT
  Age: 9 Year
  Sex: Male
  Weight: 25.5 kg

DRUGS (7)
  1. FABRAZYME [Suspect]
     Indication: FABRY'S DISEASE
     Dosage: 1 MG/KG Q2WKS IV
     Route: 042
     Dates: start: 20040915
  2. FLOVENT [Concomitant]
  3. NASONEX [Concomitant]
  4. STRATTERA [Concomitant]
  5. CLARINEX [Concomitant]
  6. CLARITIN [Concomitant]
  7. IBUPROFEN [Concomitant]

REACTIONS (3)
  - CHEST DISCOMFORT [None]
  - NAUSEA [None]
  - VOMITING [None]
